FAERS Safety Report 21518955 (Version 1)
Quarter: 2022Q4

REPORT INFORMATION
  Report Type: Report from Study
  Country: FR (occurrence: FR)
  Receive Date: 20221028
  Receipt Date: 20221028
  Transmission Date: 20230113
  Serious: Yes (Death, Hospitalization, Other)
  Sender: FDA-Public Use
  Company Number: FR-INSMED, INC.-2022-02132-FR

PATIENT
  Sex: Male

DRUGS (2)
  1. ARIKAYCE [Suspect]
     Active Substance: AMIKACIN
     Indication: Mycobacterium abscessus infection
     Dosage: 590 MILLIGRAM, QD
     Route: 055
     Dates: start: 20220728, end: 202208
  2. LAMPRENE [Concomitant]
     Active Substance: CLOFAZIMINE
     Indication: Product used for unknown indication
     Dosage: UNK
     Route: 065
     Dates: start: 20220802

REACTIONS (12)
  - Death [Fatal]
  - Lung carcinoma cell type unspecified recurrent [Not Recovered/Not Resolved]
  - Malignant pleural effusion [Unknown]
  - Respiratory tract irritation [Unknown]
  - Chest pain [Unknown]
  - Back pain [Unknown]
  - Constipation [Unknown]
  - Abdominal pain upper [Unknown]
  - Dysgeusia [Unknown]
  - Cough [Unknown]
  - Dyspnoea [Not Recovered/Not Resolved]
  - Off label use [Unknown]

NARRATIVE: CASE EVENT DATE: 20220101
